FAERS Safety Report 7572100 (Version 5)
Quarter: 2013Q4

REPORT INFORMATION
  Report Type: Spontaneous
  Country: US (occurrence: US)
  Receive Date: 20100903
  Receipt Date: 20131118
  Transmission Date: 20140711
  Serious: Yes (Hospitalization, Other)
  Sender: FDA-Public Use
  Company Number: US-BAYER-201032363NA

PATIENT
  Age: 39 Year
  Sex: Female
  Weight: 72.56 kg

DRUGS (18)
  1. YASMIN [Suspect]
     Indication: CONTRACEPTION
     Dosage: UNK
     Route: 048
     Dates: start: 2001, end: 20091102
  2. YAZ [Suspect]
     Indication: CONTRACEPTION
     Dosage: UNK
     Route: 048
     Dates: start: 2001, end: 20091102
  3. SPIRONOLACTONE [Concomitant]
     Dosage: 25 MG, UNK
     Route: 048
  4. ACYCLOVIR ALPHARMA [ACICLOVIR SODIUM] [Concomitant]
     Dosage: 800 MG, UNK
     Route: 048
  5. SULFAMETHOXAZOLE/TRIMETHOPRIM [Concomitant]
     Route: 048
  6. TUSSIONEX PENNKINETIC [Concomitant]
     Dosage: UNK
     Route: 048
  7. BENZONATATE [Concomitant]
     Dosage: 100 MG, UNK
     Route: 048
  8. CIPROFLOXACIN HYDROCHLORIDE [Concomitant]
     Dosage: 500 MG, UNK
     Route: 048
  9. HYDROCODONE W/APAP [Concomitant]
     Dosage: 5 MG, UNK
     Route: 048
  10. HYDROCODONE W/APAP [Concomitant]
     Dosage: 7.5 MG, UNK
  11. AZITHROMYCIN [Concomitant]
     Dosage: 250 MG, UNK
     Route: 048
  12. AZITHROMYCIN [Concomitant]
     Dosage: 500 MG, UNK
     Route: 048
  13. NEXIUM [Concomitant]
     Dosage: 20 MG, UNK
     Route: 048
  14. XOPENEX [Concomitant]
     Dosage: UNK UNK, PRN
     Route: 045
  15. IBUPROFEN [Concomitant]
     Dosage: 800 MG, TID
     Route: 048
  16. ASMANEX [Concomitant]
     Dosage: UNK UNK, QD
     Route: 045
  17. LORTAB [Concomitant]
  18. CIPRO [Concomitant]

REACTIONS (6)
  - Gallbladder disorder [None]
  - Pain [None]
  - Cholecystitis chronic [None]
  - Cholelithiasis [None]
  - Nausea [None]
  - Back pain [None]
